FAERS Safety Report 6041294-9 (Version None)
Quarter: 2009Q1

REPORT INFORMATION
  Report Type: 
  Country: None (occurrence: None)
  Receive Date: 20090116
  Receipt Date: 20081029
  Transmission Date: 20090719
  Serious: No
  Sender: FDA-Public Use
  Company Number: US-BRISTOL-MYERS SQUIBB COMPANY-14351381

PATIENT
  Age: 8 Year
  Sex: Male

DRUGS (2)
  1. ABILIFY [Suspect]
     Dosage: TITRATED TO 5 MG, AGAIN TITRATED BACK TO 2 MG AND EVNTUALLY DISCONTINUED.
     Dates: start: 20080724, end: 20080101
  2. DAYTRANA [Concomitant]

REACTIONS (1)
  - SCHOOL REFUSAL [None]
